FAERS Safety Report 14196619 (Version 1)
Quarter: 2017Q4

REPORT INFORMATION
  Report Type: Spontaneous
  Country: US (occurrence: US)
  Receive Date: 20171116
  Receipt Date: 20171116
  Transmission Date: 20180321
  Serious: No
  Sender: FDA-Public Use
  Company Number: US-BAUSCH-BL-2017-001295

PATIENT
  Age: 73 Year
  Sex: Female
  Weight: 77.18 kg

DRUGS (8)
  1. APRISO [Suspect]
     Active Substance: MESALAMINE
     Indication: CROHN^S DISEASE
     Dosage: 4 PILLS A DAY
     Route: 048
     Dates: start: 2016
  2. GLUCOSAMINE CHONDROITIN [Concomitant]
     Active Substance: CHONDROITIN SULFATE (BOVINE)\GLUCOSAMINE HYDROCHLORIDE
     Indication: PRODUCT USED FOR UNKNOWN INDICATION
  3. BALSALAZIDE DISODIUM. [Suspect]
     Active Substance: BALSALAZIDE DISODIUM
     Indication: COLITIS ULCERATIVE
  4. LISINOPRIL. [Concomitant]
     Active Substance: LISINOPRIL
     Indication: HYPERTENSION
  5. ZOLOFT [Concomitant]
     Active Substance: SERTRALINE HYDROCHLORIDE
     Indication: PRODUCT USED FOR UNKNOWN INDICATION
  6. APRISO [Suspect]
     Active Substance: MESALAMINE
     Dosage: 4 PILLS A DAY
     Route: 048
     Dates: start: 20170101
  7. PANTOPRAZOLE [Concomitant]
     Active Substance: PANTOPRAZOLE
     Indication: PRODUCT USED FOR UNKNOWN INDICATION
  8. BALSALAZIDE DISODIUM. [Suspect]
     Active Substance: BALSALAZIDE DISODIUM
     Indication: CROHN^S DISEASE
     Route: 048
     Dates: start: 201612

REACTIONS (8)
  - Expulsion of medication [Recovered/Resolved]
  - Retching [Recovered/Resolved]
  - Off label use [Not Recovered/Not Resolved]
  - Arthritis [Recovering/Resolving]
  - Appetite disorder [Not Recovered/Not Resolved]
  - Haemoglobin decreased [Recovered/Resolved]
  - Treatment noncompliance [Unknown]
  - Product use complaint [Recovered/Resolved]

NARRATIVE: CASE EVENT DATE: 2016
